FAERS Safety Report 5194817-6 (Version None)
Quarter: 2006Q4

REPORT INFORMATION
  Report Type: 
  Country: None (occurrence: None)
  Receive Date: 20061229
  Receipt Date: 20061220
  Transmission Date: 20070319
  Serious: Yes (Hospitalization)
  Sender: FDA-Public Use
  Company Number: US-BRISTOL-MYERS SQUIBB COMPANY-13621073

PATIENT
  Age: 12 Year
  Sex: Female

DRUGS (17)
  1. CETUXIMAB [Suspect]
     Indication: NEOPLASM
     Route: 042
     Dates: start: 20061127, end: 20061211
  2. IRINOTECAN HCL [Suspect]
     Indication: NEOPLASM
     Route: 042
     Dates: start: 20061127, end: 20061208
  3. ASPIRIN [Concomitant]
     Dates: start: 20051013
  4. LOPERAMIDE HCL [Concomitant]
  5. MORPHINE [Concomitant]
     Dates: start: 20061122
  6. VANTIN [Concomitant]
     Dates: start: 20061127
  7. ATIVAN [Concomitant]
     Dates: start: 20061123
  8. TRILISATE [Concomitant]
     Dates: start: 20061121
  9. VISTARIL [Concomitant]
     Dates: start: 20061121
  10. FERROUS SULFATE TAB [Concomitant]
     Dates: start: 20061211
  11. AMBIEN [Concomitant]
     Dates: start: 20061121
  12. BENADRYL [Concomitant]
     Dates: start: 20061122
  13. PEPCID [Concomitant]
     Dates: start: 20061121
  14. TYLENOL (CAPLET) [Concomitant]
  15. SCOPOLAMINE [Concomitant]
     Dates: start: 20061122
  16. PHENERGAN [Concomitant]
     Dates: start: 20061122
  17. ZOFRAN [Concomitant]
     Dates: start: 20061122

REACTIONS (4)
  - BLOOD POTASSIUM DECREASED [None]
  - CATHETER RELATED INFECTION [None]
  - CHILLS [None]
  - PYREXIA [None]
